FAERS Safety Report 5028048-7 (Version None)
Quarter: 2006Q2

REPORT INFORMATION
  Report Type: 
  Country: None (occurrence: None)
  Receive Date: 20060612
  Receipt Date: 20051229
  Transmission Date: 20061013
  Serious: Yes (Death, Life-Threatening, Hospitalization)
  Sender: FDA-Public Use
  Company Number: GBWYE234114DEC05

PATIENT
  Age: 63 Year
  Sex: Female

DRUGS (1)
  1. GEMTUZUMAB OZOGAMICIN (GEMTUZUMAB OZOGAMICIN, INJECTION) [Suspect]
     Indication: ACUTE MYELOID LEUKAEMIA
     Dates: start: 20050101

REACTIONS (14)
  - ALANINE AMINOTRANSFERASE INCREASED [None]
  - ASPARTATE AMINOTRANSFERASE INCREASED [None]
  - BLOOD DISORDER [None]
  - DIARRHOEA [None]
  - HAEMOGLOBIN DECREASED [None]
  - LETHARGY [None]
  - LOSS OF CONSCIOUSNESS [None]
  - LOWER RESPIRATORY TRACT INFECTION [None]
  - NEUTROPHIL COUNT DECREASED [None]
  - PLATELET COUNT DECREASED [None]
  - RENAL FAILURE [None]
  - STAPHYLOCOCCAL BACTERAEMIA [None]
  - VENOOCCLUSIVE LIVER DISEASE [None]
  - WHITE BLOOD CELL COUNT DECREASED [None]
